FAERS Safety Report 7784073-4 (Version None)
Quarter: 2011Q3

REPORT INFORMATION
  Report Type: 
  Country: None (occurrence: None)
  Receive Date: 20110928
  Receipt Date: 20110620
  Transmission Date: 20111222
  Serious: No
  Sender: FDA-Public Use
  Company Number: US-BAYER-2011-054078

PATIENT
  Age: 77 Year
  Sex: Male
  Weight: 63 kg

DRUGS (1)
  1. ALEVE (CAPLET) [Suspect]
     Indication: ANALGESIC THERAPY
     Dosage: 2 DF, QD
     Route: 048
     Dates: start: 20110401, end: 20110620

REACTIONS (1)
  - NO ADVERSE EVENT [None]
